FAERS Safety Report 17452187 (Version 1)
Quarter: 2020Q1

REPORT INFORMATION
  Report Type: Spontaneous
  Country: SE (occurrence: SE)
  Receive Date: 20200224
  Receipt Date: 20200224
  Transmission Date: 20200409
  Serious: Yes (Other)
  Sender: FDA-Public Use
  Company Number: SE-MYLANLABS-2020M1018597

PATIENT
  Age: 46 Year
  Sex: Female

DRUGS (1)
  1. ESCITALOPRAM [Suspect]
     Active Substance: ESCITALOPRAM OXALATE
     Indication: PRODUCT USED FOR UNKNOWN INDICATION
     Route: 065
     Dates: end: 20160315

REACTIONS (4)
  - Judgement impaired [Unknown]
  - Psychotic disorder [Unknown]
  - Bipolar disorder [Unknown]
  - Depersonalisation/derealisation disorder [Unknown]

NARRATIVE: CASE EVENT DATE: 20150720
